FAERS Safety Report 11825678 (Version 3)
Quarter: 2016Q3

REPORT INFORMATION
  Report Type: Spontaneous
  Country: US (occurrence: US)
  Receive Date: 20151211
  Receipt Date: 20160725
  Transmission Date: 20161109
  Serious: No
  Sender: FDA-Public Use
  Company Number: US-JNJFOC-20150623798

PATIENT
  Age: 73 Year
  Sex: Female

DRUGS (4)
  1. SINGULAIR [Concomitant]
     Active Substance: MONTELUKAST SODIUM
  2. ASPIRIN. [Concomitant]
     Active Substance: ASPIRIN
  3. IMBRUVICA [Suspect]
     Active Substance: IBRUTINIB
     Indication: CHRONIC LYMPHOCYTIC LEUKAEMIA
     Route: 048
     Dates: start: 20150411
  4. CRESTOR [Concomitant]
     Active Substance: ROSUVASTATIN CALCIUM

REACTIONS (18)
  - Skin mass [Unknown]
  - Inflammation [Unknown]
  - Myalgia [Unknown]
  - Hair injury [Unknown]
  - Oedema [Not Recovered/Not Resolved]
  - Nail disorder [Unknown]
  - Peripheral swelling [Not Recovered/Not Resolved]
  - Contusion [Unknown]
  - Muscle spasms [Unknown]
  - Fatigue [Unknown]
  - Memory impairment [Not Recovered/Not Resolved]
  - Pruritus [Unknown]
  - Balance disorder [Unknown]
  - Erythema [Unknown]
  - Arthralgia [Unknown]
  - Feeling abnormal [Unknown]
  - Drug dose omission [Unknown]
  - Rash macular [Unknown]

NARRATIVE: CASE EVENT DATE: 2015
